FAERS Safety Report 18418011 (Version 1)
Quarter: 2020Q4

REPORT INFORMATION
  Report Type: Spontaneous
  Country: FR (occurrence: FR)
  Receive Date: 20201023
  Receipt Date: 20201023
  Transmission Date: 20210114
  Serious: Yes (Hospitalization)
  Sender: FDA-Public Use
  Company Number: FR-SAMSUNG BIOEPIS-SB-2020-32183

PATIENT
  Age: 57 Year
  Sex: Male

DRUGS (5)
  1. HYDROXYCHLOROQUINE [Concomitant]
     Active Substance: HYDROXYCHLOROQUINE
     Indication: PRODUCT USED FOR UNKNOWN INDICATION
     Dosage: UNKNOWN
     Route: 065
  2. HYDROXYCHLOROQUINE [Concomitant]
     Active Substance: HYDROXYCHLOROQUINE
     Indication: WHIPPLE^S DISEASE
     Route: 065
  3. MTX [Concomitant]
     Active Substance: METHOTREXATE SODIUM
     Indication: TENOSYNOVITIS
     Dosage: UNKNOWN
     Route: 065
  4. ETANERCEPT [Suspect]
     Active Substance: ETANERCEPT
     Indication: WHIPPLE^S DISEASE
     Dosage: UNKNOWN
     Route: 065
  5. DOXYCYCLINE. [Concomitant]
     Active Substance: DOXYCYCLINE
     Indication: WHIPPLE^S DISEASE
     Route: 065

REACTIONS (6)
  - Pain [Recovered/Resolved]
  - Synovial rupture [Unknown]
  - Drug ineffective for unapproved indication [Unknown]
  - Arthritis [Unknown]
  - Off label use [Unknown]
  - General physical health deterioration [Unknown]
